FAERS Safety Report 4427893-6 (Version None)
Quarter: 2004Q3

REPORT INFORMATION
  Report Type: 
  Country: None (occurrence: None)
  Receive Date: 20040813
  Receipt Date: 20040727
  Transmission Date: 20050211
  Serious: Yes (Hospitalization)
  Sender: FDA-Public Use
  Company Number: 207353

PATIENT
  Age: 60 Year
  Sex: Female

DRUGS (1)
  1. RAPTIVA [Suspect]
     Indication: PSORIASIS
     Dosage: 0.35 ML, SINGLE, SUBCUTANEOUS
     Route: 058
     Dates: start: 20040611, end: 20040612

REACTIONS (16)
  - BLOOD CHOLESTEROL INCREASED [None]
  - BLOOD POTASSIUM DECREASED [None]
  - BLOOD PRESSURE DIASTOLIC INCREASED [None]
  - BLOOD PRESSURE SYSTOLIC INCREASED [None]
  - BLOOD SODIUM DECREASED [None]
  - CEREBRAL ISCHAEMIA [None]
  - GRANULOMA [None]
  - HALLUCINATION [None]
  - LABORATORY TEST ABNORMAL [None]
  - MITRAL VALVE CALCIFICATION [None]
  - MITRAL VALVE INCOMPETENCE [None]
  - MITRAL VALVE PROLAPSE [None]
  - PROTHROMBIN TIME SHORTENED [None]
  - PUPILLARY REFLEX IMPAIRED [None]
  - SPLENIC LESION [None]
  - TRANSIENT ISCHAEMIC ATTACK [None]
